FAERS Safety Report 7204551-6 (Version None)
Quarter: 2010Q4

REPORT INFORMATION
  Report Type: 
  Country: None (occurrence: None)
  Receive Date: 20101230
  Receipt Date: 20101221
  Transmission Date: 20110411
  Serious: Yes (Hospitalization)
  Sender: FDA-Public Use
  Company Number: PHHO2010NL19402

PATIENT
  Sex: Male
  Weight: 64 kg

DRUGS (4)
  1. SANDIMMUNE [Suspect]
     Indication: GRAFT VERSUS HOST DISEASE
     Dosage: 225 MG, BID
     Route: 048
  2. MYCOPHENOLIC ACID [Suspect]
     Indication: GRAFT VERSUS HOST DISEASE
     Dosage: UNK
  3. COTRIM [Concomitant]
  4. ESOMEPRAZOLE [Concomitant]

REACTIONS (3)
  - ELECTROLYTE IMBALANCE [None]
  - HYPOTENSION [None]
  - RENAL FAILURE [None]
